FAERS Safety Report 22255932 (Version 1)
Quarter: 2023Q2

REPORT INFORMATION
  Report Type: Spontaneous
  Country: NO (occurrence: NO)
  Receive Date: 20230426
  Receipt Date: 20230426
  Transmission Date: 20230721
  Serious: Yes (Hospitalization, Other)
  Sender: FDA-Public Use
  Company Number: None

PATIENT
  Age: 27 Year
  Sex: Female
  Weight: 54 kg

DRUGS (6)
  1. NEURONTIN [Suspect]
     Active Substance: GABAPENTIN
     Indication: Neuralgia
     Dosage: UNK
     Route: 048
     Dates: start: 2023
  2. NEURONTIN [Suspect]
     Active Substance: GABAPENTIN
     Dosage: 300MG + 300MG + 600 MG, Q8H
     Route: 048
     Dates: start: 20230119, end: 20230123
  3. TRAMADOL HYDROCHLORIDE [Suspect]
     Active Substance: TRAMADOL HYDROCHLORIDE
     Indication: Neuralgia
     Dosage: 100 MILLIGRAM (100 MG X 2)
     Route: 065
     Dates: start: 20230118, end: 20230123
  4. LEVOTHYROXINE SODIUM [Concomitant]
     Active Substance: LEVOTHYROXINE SODIUM
     Dosage: 50 MICROGRAM, QD
     Route: 065
     Dates: start: 2014
  5. OXAZEPAM [Concomitant]
     Active Substance: OXAZEPAM
     Indication: Neuralgia
     Dosage: X 2
     Route: 065
     Dates: start: 20230119, end: 20230119
  6. Attentin [Concomitant]
     Indication: Attention deficit hyperactivity disorder
     Dosage: UP TO X 2
     Route: 065
     Dates: start: 202209

REACTIONS (49)
  - Urinary retention [Recovered/Resolved with Sequelae]
  - Heart rate increased [Unknown]
  - Apnoea [Recovered/Resolved with Sequelae]
  - Chest pain [Unknown]
  - Emotional distress [Unknown]
  - Chills [Recovered/Resolved with Sequelae]
  - Flank pain [Unknown]
  - Thirst [Recovered/Resolved with Sequelae]
  - Cyanosis [Recovered/Resolved with Sequelae]
  - Apathy [Recovered/Resolved with Sequelae]
  - Dysuria [Unknown]
  - Psychological trauma [Unknown]
  - Bedridden [Unknown]
  - Hypopnoea [Recovered/Resolved with Sequelae]
  - Skin tightness [Unknown]
  - Feeling cold [Unknown]
  - Muscle spasms [Recovered/Resolved with Sequelae]
  - Cold sweat [Unknown]
  - Balance disorder [Unknown]
  - Bladder pain [Unknown]
  - Cognitive disorder [Recovered/Resolved with Sequelae]
  - Pallor [Recovered/Resolved with Sequelae]
  - Hypersomnia [Unknown]
  - Abnormal behaviour [Unknown]
  - Haematuria [Unknown]
  - Livedo reticularis [Unknown]
  - Erythema [Unknown]
  - Feeling abnormal [Unknown]
  - Peripheral coldness [Unknown]
  - Hyperhidrosis [Unknown]
  - Pain [Unknown]
  - Abdominal pain [Unknown]
  - Confusional state [Recovered/Resolved with Sequelae]
  - Somnolence [Recovered/Resolved with Sequelae]
  - Abdominal pain upper [Unknown]
  - Asthenia [Unknown]
  - Palpitations [Unknown]
  - Nausea [Unknown]
  - Depression [Unknown]
  - Diarrhoea [Unknown]
  - Dyspnoea [Unknown]
  - Anxiety [Recovered/Resolved with Sequelae]
  - Muscle twitching [Recovered/Resolved with Sequelae]
  - Malaise [Unknown]
  - Dysarthria [Recovered/Resolved with Sequelae]
  - Insomnia [Unknown]
  - Gait disturbance [Recovered/Resolved with Sequelae]
  - Urinary tract infection [Unknown]
  - Dry mouth [Unknown]

NARRATIVE: CASE EVENT DATE: 20230101
